FAERS Safety Report 5055669-8 (Version None)
Quarter: 2006Q3

REPORT INFORMATION
  Report Type: 
  Country: None (occurrence: None)
  Receive Date: 20060714
  Receipt Date: 20060629
  Transmission Date: 20061208
  Serious: Yes (Hospitalization, Disabling, Other)
  Sender: FDA-Public Use
  Company Number: US200606006255

PATIENT
  Age: 57 Year
  Sex: Male
  Weight: 117.9 kg

DRUGS (5)
  1. HUMULIN R [Suspect]
     Dosage: 60 U, 2/D
     Dates: start: 19900101
  2. HUMULIN U [Suspect]
     Dates: start: 19900101, end: 20060401
  3. HUMULIN N [Suspect]
     Dosage: 30 U, 2/D
     Dates: start: 20060401
  4. SYNTHROID [Concomitant]
  5. GLUCOTROL [Concomitant]

REACTIONS (27)
  - ABDOMINAL PAIN UPPER [None]
  - BENIGN NEOPLASM OF BLADDER [None]
  - BLOOD CHOLESTEROL INCREASED [None]
  - BLOOD GLUCOSE DECREASED [None]
  - CHEST PAIN [None]
  - CORONARY ARTERY BYPASS [None]
  - DIVERTICULITIS [None]
  - DYSGEUSIA [None]
  - FEELING DRUNK [None]
  - GALLBLADDER DISORDER [None]
  - HEADACHE [None]
  - IMPAIRED DRIVING ABILITY [None]
  - INSOMNIA [None]
  - INTERVERTEBRAL DISC PROTRUSION [None]
  - LABYRINTHITIS [None]
  - LIMB DISCOMFORT [None]
  - MUSCLE SPASMS [None]
  - NERVE COMPRESSION [None]
  - NERVE INJURY [None]
  - NEURALGIA [None]
  - NEUROPATHY PERIPHERAL [None]
  - PAIN IN EXTREMITY [None]
  - PARAESTHESIA [None]
  - PAROSMIA [None]
  - PHARMACEUTICAL PRODUCT COMPLAINT [None]
  - ROAD TRAFFIC ACCIDENT [None]
  - SCIATIC NERVE INJURY [None]
